FAERS Safety Report 4703111-6 (Version None)
Quarter: 2005Q2

REPORT INFORMATION
  Report Type: 
  Country: None (occurrence: None)
  Receive Date: 20050629
  Receipt Date: 20050607
  Transmission Date: 20051028
  Serious: Yes (Other)
  Sender: FDA-Public Use
  Company Number: US-GLAXOSMITHKLINE-A0561619A

PATIENT
  Age: 54 Year
  Sex: Male

DRUGS (2)
  1. LAMICTAL [Suspect]
     Indication: BIPOLAR DISORDER
     Route: 048
     Dates: start: 20050104
  2. XANAX [Suspect]
     Dosage: 1MG THREE TIMES PER DAY

REACTIONS (7)
  - AMNESIA [None]
  - APHASIA [None]
  - COGNITIVE DETERIORATION [None]
  - HANGOVER [None]
  - HUNGER [None]
  - MEMORY IMPAIRMENT [None]
  - WEIGHT INCREASED [None]
